FAERS Safety Report 8096456-6 (Version None)
Quarter: 2012Q1

REPORT INFORMATION
  Report Type: 
  Country: None (occurrence: None)
  Receive Date: 20120129
  Receipt Date: 20111213
  Transmission Date: 20120608
  Serious: No
  Sender: FDA-Public Use
  Company Number: US-ABBOTT-11P-163-0883088-00

PATIENT
  Age: 16 Year
  Sex: Male

DRUGS (5)
  1. ASCORBIC ACID [Concomitant]
     Indication: VITAMIN SUPPLEMENTATION
     Dosage: OTC
  2. 2% NITROBED OINTMENT [Concomitant]
     Indication: CARDIOVASCULAR DISORDER
  3. HUMIRA [Suspect]
     Indication: ANKYLOSING SPONDYLITIS
     Dates: start: 20111008
  4. ONE A DAY MENS [Concomitant]
     Indication: VITAMIN SUPPLEMENTATION
  5. NAPROSYN [Concomitant]
     Indication: PRODUCT USED FOR UNKNOWN INDICATION
     Route: 048

REACTIONS (3)
  - COUGH [None]
  - PARANASAL SINUS HYPERSECRETION [None]
  - SINUS CONGESTION [None]
